FAERS Safety Report 9807633 (Version 1)
Quarter: 2014Q1

REPORT INFORMATION
  Report Type: Spontaneous
  Country: GR (occurrence: GR)
  Receive Date: 20140110
  Receipt Date: 20140110
  Transmission Date: 20141002
  Serious: Yes (Other)
  Sender: FDA-Public Use
  Company Number: GR-ROCHE-1329036

PATIENT
  Age: 57 Year
  Sex: Female

DRUGS (3)
  1. HERCEPTIN [Suspect]
     Indication: BREAST CANCER
     Dosage: 18 DOSES DRUG (EVERY DOSE INCLUDES 3 VIALS OF ^^150^^ WHICH IS ADMINISTERED TO THE PATIENT EVERY 20
     Route: 065
  2. THYROHORMONE [Concomitant]
  3. NOLVADEX [Concomitant]

REACTIONS (5)
  - Hypoaesthesia [Unknown]
  - Syncope [Unknown]
  - Pallor [Unknown]
  - Malaise [Unknown]
  - Laceration [Unknown]
